FAERS Safety Report 15539637 (Version 1)
Quarter: 2018Q4

REPORT INFORMATION
  Report Type: Spontaneous
  Country: JP (occurrence: JP)
  Receive Date: 20181023
  Receipt Date: 20181023
  Transmission Date: 20190205
  Serious: Yes (Other)
  Sender: FDA-Public Use
  Company Number: JP-ROCHE-2201167

PATIENT
  Age: 55 Year
  Sex: Male

DRUGS (1)
  1. LUCENTIS [Suspect]
     Active Substance: RANIBIZUMAB
     Indication: RETINAL VEIN OCCLUSION
     Route: 031
     Dates: start: 20151211, end: 20151211

REACTIONS (3)
  - Drug ineffective [Unknown]
  - Visual acuity reduced [Recovered/Resolved]
  - Cystoid macular oedema [Recovered/Resolved]

NARRATIVE: CASE EVENT DATE: 20160121
